FAERS Safety Report 13868500 (Version 2)
Quarter: 2018Q1

REPORT INFORMATION
  Report Type: Spontaneous
  Country: IT (occurrence: IT)
  Receive Date: 20170815
  Receipt Date: 20180304
  Transmission Date: 20180508
  Serious: Yes (Hospitalization)
  Sender: FDA-Public Use
  Company Number: IT-UCBSA-2017031438

PATIENT
  Age: 3 Year
  Sex: Female

DRUGS (4)
  1. GARDENALE [Concomitant]
     Active Substance: PHENOBARBITAL
     Indication: PRODUCT USED FOR UNKNOWN INDICATION
  2. KEPPRA [Suspect]
     Active Substance: LEVETIRACETAM
     Indication: EPILEPSY
     Dosage: STRENGTH 100 MG/ML, 8ML DAILY DOSE
     Route: 048
     Dates: start: 20160501, end: 20170123
  3. MICROPAM [Concomitant]
     Active Substance: DIAZEPAM
     Indication: PRODUCT USED FOR UNKNOWN INDICATION
  4. DINTOINA [Concomitant]
     Active Substance: PHENYTOIN SODIUM
     Indication: PRODUCT USED FOR UNKNOWN INDICATION

REACTIONS (5)
  - Insomnia [Recovering/Resolving]
  - Terminal insomnia [Recovering/Resolving]
  - Irritability [Recovering/Resolving]
  - Psychomotor hyperactivity [Recovering/Resolving]
  - Toe walking [Recovering/Resolving]

NARRATIVE: CASE EVENT DATE: 20160601
